FAERS Safety Report 19590715 (Version 1)
Quarter: 2021Q3

REPORT INFORMATION
  Report Type: Spontaneous
  Country: US (occurrence: US)
  Receive Date: 20210721
  Receipt Date: 20210721
  Transmission Date: 20211014
  Serious: No
  Sender: FDA-Public Use
  Company Number: US-SA-2021SA233794

PATIENT
  Age: 73 Year
  Sex: Female

DRUGS (1)
  1. TOUJEO [Suspect]
     Active Substance: INSULIN GLARGINE
     Dosage: 80 IU, QD (IN THE MORNING)
     Route: 065

REACTIONS (3)
  - Tremor [Unknown]
  - Night sweats [Unknown]
  - Fatigue [Unknown]
